FAERS Safety Report 8875684 (Version 3)
Quarter: 2013Q4

REPORT INFORMATION
  Report Type: Spontaneous
  Country: CO (occurrence: CO)
  Receive Date: 20121030
  Receipt Date: 20131015
  Transmission Date: 20140711
  Serious: Yes (Disabling, Other)
  Sender: FDA-Public Use
  Company Number: CO-ROCHE-1149039

PATIENT
  Age: 11 Year
  Sex: Male

DRUGS (3)
  1. XOLAIR [Suspect]
     Indication: RESPIRATORY THERAPY
     Route: 058
  2. XOLAIR [Suspect]
     Route: 042
     Dates: start: 20120215
  3. MONTELUKAST [Concomitant]

REACTIONS (6)
  - Asthmatic crisis [Unknown]
  - Respiratory disorder [Unknown]
  - Nasal congestion [Not Recovered/Not Resolved]
  - Asthenia [Unknown]
  - Incorrect route of drug administration [Unknown]
  - Drug ineffective [Unknown]
